FAERS Safety Report 5598953-1 (Version None)
Quarter: 2008Q1

REPORT INFORMATION
  Report Type: 
  Country: None (occurrence: None)
  Receive Date: 20080122
  Receipt Date: 20080109
  Transmission Date: 20080703
  Serious: Yes (Other)
  Sender: FDA-Public Use
  Company Number: BR-ROCHE-540795

PATIENT
  Age: 68 Year
  Sex: Male
  Weight: 75 kg

DRUGS (3)
  1. CLONAZEPAM [Suspect]
     Indication: INSOMNIA
     Dosage: THE PATIENT TOOK ONE TABLET A DAY AND WHEN NECESSARY. HE ALSO TAKES ONE TABLET OF 0.25 MG AT DAWN
     Route: 048
     Dates: start: 20070901
  2. ENALAPRIL MALEATE [Concomitant]
     Indication: HYPERTENSION
     Dates: start: 20020101
  3. MANTIDAN [Concomitant]
     Dates: start: 20070801, end: 20071001

REACTIONS (3)
  - INGUINAL HERNIA [None]
  - NO THERAPEUTIC RESPONSE [None]
  - WEIGHT DECREASED [None]
